FAERS Safety Report 8313588-5 (Version None)
Quarter: 2012Q2

REPORT INFORMATION
  Report Type: 
  Country: None (occurrence: None)
  Receive Date: 20120425
  Receipt Date: 20120425
  Transmission Date: 20120825
  Serious: Yes (Other)
  Sender: FDA-Public Use
  Company Number: None

PATIENT
  Age: 10 Year
  Sex: Female
  Weight: 59.4212 kg

DRUGS (1)
  1. PROZAC [Suspect]
     Indication: MULTIPLE SCLEROSIS
     Dosage: 20 MG 3 X DAY
     Dates: start: 19980101, end: 20080101

REACTIONS (1)
  - GAMBLING [None]
